FAERS Safety Report 13882291 (Version 1)
Quarter: 2017Q3

REPORT INFORMATION
  Report Type: Spontaneous
  Country: US (occurrence: US)
  Receive Date: 20170818
  Receipt Date: 20170818
  Transmission Date: 20171127
  Serious: Yes (Other)
  Sender: FDA-Public Use
  Company Number: US-LUPIN PHARMACEUTICALS INC.-2017-04687

PATIENT
  Sex: Female

DRUGS (1)
  1. CEFUROXIME AXETIL. [Suspect]
     Active Substance: CEFUROXIME AXETIL
     Indication: PNEUMONIA
     Dosage: 500 MG, UNK
     Route: 065

REACTIONS (3)
  - Retinal detachment [Unknown]
  - Neuropathy peripheral [Unknown]
  - Asthenia [Unknown]
